FAERS Safety Report 25746587 (Version 1)
Quarter: 2025Q3

REPORT INFORMATION
  Report Type: Spontaneous
  Country: US (occurrence: US)
  Receive Date: 20250901
  Receipt Date: 20250901
  Transmission Date: 20251021
  Serious: Yes (Death, Life-Threatening, Hospitalization, Other)
  Sender: MEITHEAL PHARMACEUTICALS
  Company Number: US-MEITHEAL-2025MPLIT00307

PATIENT
  Age: 65 Year
  Sex: Male

DRUGS (4)
  1. BENDAMUSTINE HYDROCHLORIDE [Suspect]
     Active Substance: BENDAMUSTINE HYDROCHLORIDE
     Indication: Chronic myelomonocytic leukaemia
     Route: 065
  2. RITUXIMAB [Suspect]
     Active Substance: RITUXIMAB
     Indication: Chronic myelomonocytic leukaemia
     Route: 065
  3. GRANULOCYTE COLONY-STIMULATING FACTOR NOS [Concomitant]
     Active Substance: GRANULOCYTE COLONY-STIMULATING FACTOR NOS
     Indication: Chronic myelomonocytic leukaemia
     Route: 065
  4. Zanubrutnib [Concomitant]
     Indication: Waldenstrom^s macroglobulinaemia
     Route: 065

REACTIONS (10)
  - Acute respiratory failure [Fatal]
  - Acute kidney injury [Fatal]
  - Subdural haematoma [Fatal]
  - Disseminated intravascular coagulation [Fatal]
  - Hyperleukocytosis [Fatal]
  - Multiple organ dysfunction syndrome [Fatal]
  - Cardiac arrest [Fatal]
  - Tachycardia [Fatal]
  - Pancytopenia [Fatal]
  - Tumour lysis syndrome [Fatal]
